FAERS Safety Report 8036947 (Version 2)
Quarter: 2012Q4

REPORT INFORMATION
  Report Type: 
  Country: US (occurrence: US)
  Receive Date: 20110715
  Receipt Date: 20121130
  Transmission Date: 20130627
  Serious: Yes (Hospitalization)
  Sender: FDA-Public Use
  Company Number: US-JNJFOC-20110703443

PATIENT
  Age: 19 Year
  Sex: Female

DRUGS (2)
  1. PARACETAMOL [Suspect]
     Indication: PRODUCT USED FOR UNKNOWN INDICATION
     Dosage: took 3 to 4 tabs every few hours after 1000 until 0100 on 08/05/2008 total nearly 20
     Route: 048
     Dates: start: 20080804, end: 20080805
  2. PARACETAMOL [Suspect]
     Indication: PRODUCT USED FOR UNKNOWN INDICATION
     Dosage: 3 to 4 tabs (500 mg each) therefore 1500-2000 mg
     Route: 048
     Dates: start: 20080804, end: 20080804

REACTIONS (6)
  - Overdose [Unknown]
  - Liver injury [Recovering/Resolving]
  - Aspartate aminotransferase increased [None]
  - Alanine aminotransferase increased [None]
  - Blood bilirubin increased [None]
  - Bilirubin conjugated increased [None]
